FAERS Safety Report 20582327 (Version 1)
Quarter: 2022Q1

REPORT INFORMATION
  Report Type: Spontaneous
  Country: US (occurrence: US)
  Receive Date: 20220311
  Receipt Date: 20220311
  Transmission Date: 20220423
  Serious: Yes (Hospitalization, Other)
  Sender: FDA-Public Use
  Company Number: US-TORRENT-00011780

PATIENT
  Age: 79 Year
  Sex: Male

DRUGS (1)
  1. OLMESARTAN [Suspect]
     Active Substance: OLMESARTAN
     Indication: Hypertension
     Dosage: UNKNOWN
     Route: 065

REACTIONS (3)
  - Sprue-like enteropathy [Recovered/Resolved]
  - Weight decreased [Unknown]
  - Hypotension [Recovered/Resolved]
